FAERS Safety Report 22205983 (Version 4)
Quarter: 2023Q2

REPORT INFORMATION
  Report Type: Other
  Country: US (occurrence: None)
  Receive Date: 20230413
  Receipt Date: 20230510
  Transmission Date: 20230721
  Serious: Yes (Death)
  Sender: FDA-Public Use
  Company Number: US-ROCHE-3294744

PATIENT
  Age: 84 Year
  Sex: Female

DRUGS (3)
  1. ESBRIET [Suspect]
     Active Substance: PIRFENIDONE
     Indication: Interstitial lung disease
     Dosage: 3 TABLETS THREE TIMES A DAY
     Route: 048
  2. ESBRIET [Suspect]
     Active Substance: PIRFENIDONE
     Indication: Idiopathic pulmonary fibrosis
  3. ESBRIET [Suspect]
     Active Substance: PIRFENIDONE
     Indication: Pneumonia

REACTIONS (1)
  - Death [Fatal]

NARRATIVE: CASE EVENT DATE: 20230205
